FAERS Safety Report 9819686 (Version 2)
Quarter: 2014Q1

REPORT INFORMATION
  Report Type: Report from Study
  Country: CA (occurrence: CA)
  Receive Date: 20140115
  Receipt Date: 20140307
  Transmission Date: 20141002
  Serious: Yes (Death, Other)
  Sender: FDA-Public Use
  Company Number: PHHY2014CA004398

PATIENT
  Age: 74 Year
  Sex: Female

DRUGS (1)
  1. CLOZARIL [Suspect]
     Indication: SCHIZOPHRENIA
     Dosage: UNK UKN, UNK
     Dates: start: 19990521

REACTIONS (3)
  - Coronary artery insufficiency [Fatal]
  - Pneumonia [Unknown]
  - General physical health deterioration [Unknown]
